FAERS Safety Report 8212838-3 (Version None)
Quarter: 2012Q1

REPORT INFORMATION
  Report Type: 
  Country: None (occurrence: None)
  Receive Date: 20120315
  Receipt Date: 20120307
  Transmission Date: 20120608
  Serious: Yes (Hospitalization)
  Sender: FDA-Public Use
  Company Number: US-ABBOTT-12P-163-0912834-00

PATIENT
  Age: 42 Year
  Sex: Female
  Weight: 65.83 kg

DRUGS (9)
  1. SPIRONOLACTONE W/ HYDROCHLOROTHIAZIDE [Concomitant]
     Indication: PRODUCT USED FOR UNKNOWN INDICATION
  2. LASIX [Concomitant]
     Indication: PRODUCT USED FOR UNKNOWN INDICATION
  3. VICODIN [Suspect]
     Indication: PAIN
     Route: 048
  4. IMITREX [Concomitant]
     Indication: PRODUCT USED FOR UNKNOWN INDICATION
  5. SPIRIVA [Concomitant]
     Indication: PRODUCT USED FOR UNKNOWN INDICATION
  6. LEVOTHYROXINE SODIUM [Concomitant]
     Indication: PRODUCT USED FOR UNKNOWN INDICATION
  7. ZOFRAN [Concomitant]
     Indication: PRODUCT USED FOR UNKNOWN INDICATION
  8. FLOLAN [Suspect]
     Indication: PULMONARY ARTERIAL HYPERTENSION
     Dosage: 20NG/KG/MIN,STERILE POWDER, 30000NG/ML
     Route: 042
     Dates: start: 20100521
  9. FLOLAN [Suspect]
     Dosage: 24NG/KG/MIN

REACTIONS (3)
  - PULMONARY HYPERTENSION [None]
  - OVERDOSE [None]
  - UNRESPONSIVE TO STIMULI [None]
